FAERS Safety Report 9616813 (Version 8)
Quarter: 2014Q1

REPORT INFORMATION
  Report Type: Report from Study
  Country: NL (occurrence: NL)
  Receive Date: 20131011
  Receipt Date: 20140217
  Transmission Date: 20141002
  Serious: Yes (Life-Threatening)
  Sender: FDA-Public Use
  Company Number: NL-PFIZER INC-2013287439

PATIENT
  Age: 69 Year
  Sex: Male
  Weight: 79.2 kg

DRUGS (2)
  1. TOFACITINIB CITRATE [Suspect]
     Indication: PSORIASIS
     Dosage: 5 MG, 2X/DAY
     Dates: start: 20120703, end: 20131008
  2. SIMVASTATIN [Concomitant]
     Indication: DYSLIPIDAEMIA
     Dosage: 40 MG, 1X/DAY
     Route: 048
     Dates: start: 2010

REACTIONS (1)
  - Prostate cancer metastatic [Not Recovered/Not Resolved]
